FAERS Safety Report 18099037 (Version 1)
Quarter: 2020Q3

REPORT INFORMATION
  Report Type: Spontaneous
  Country: CH (occurrence: CH)
  Receive Date: 20200731
  Receipt Date: 20200731
  Transmission Date: 20201103
  Serious: Yes (Death, Other)
  Sender: FDA-Public Use
  Company Number: CH-PFIZER INC-2020246550

PATIENT
  Age: 74 Year
  Sex: Male

DRUGS (34)
  1. CO?AMOXI [Suspect]
     Active Substance: AMOXICILLIN\CLAVULANATE POTASSIUM
     Dosage: 2.2 G IN TOTAL
     Route: 041
     Dates: start: 20200325, end: 20200325
  2. MIDAZOLAM. [Suspect]
     Active Substance: MIDAZOLAM
     Dosage: UNK
     Dates: start: 20200327, end: 20200417
  3. SOTALOL. [Suspect]
     Active Substance: SOTALOL
     Dosage: UNK
     Dates: end: 20200417
  4. ACENOCOUMAROL [Concomitant]
     Active Substance: ACENOCOUMAROL
     Dosage: 2 MG
  5. KETAMINE HCL [Concomitant]
     Active Substance: KETAMINE HYDROCHLORIDE
     Dosage: UNK
     Dates: start: 20200401, end: 20200405
  6. PIPERACILLIN/TAZOBACTAM [Suspect]
     Active Substance: PIPERACILLIN SODIUM\TAZOBACTAM SODIUM
     Dosage: 4.5 G
     Dates: start: 20200326, end: 20200401
  7. REYATAZ [Suspect]
     Active Substance: ATAZANAVIR SULFATE
     Dosage: 400 MG, DAILY
     Route: 048
     Dates: start: 20200325, end: 20200329
  8. ROCURONIUM [ROCURONIUM BROMIDE] [Suspect]
     Active Substance: ROCURONIUM BROMIDE
     Dosage: 30 G
     Dates: start: 20200411, end: 20200414
  9. PARACETAMOL [Suspect]
     Active Substance: ACETAMINOPHEN
     Dosage: 4 G, DAILY
     Dates: start: 20200325
  10. PROPOFOL. [Suspect]
     Active Substance: PROPOFOL
     Dosage: 30 MG
     Dates: start: 20200326, end: 20200410
  11. SOTALOL. [Suspect]
     Active Substance: SOTALOL
     Dosage: UNK
  12. KETAMINE HCL [Concomitant]
     Active Substance: KETAMINE HYDROCHLORIDE
     Dosage: UNK
     Dates: start: 20200410, end: 20200417
  13. VITAMIN D3 [Concomitant]
     Active Substance: CHOLECALCIFEROL
     Dosage: UNK
  14. TAZOBAC [Suspect]
     Active Substance: PIPERACILLIN SODIUM\TAZOBACTAM SODIUM
     Dosage: 4.5 G, 3X/DAY
     Route: 041
     Dates: start: 20200326
  15. PLAQUENIL [Suspect]
     Active Substance: HYDROXYCHLOROQUINE SULFATE
     Dosage: 400 MG, DAILY
     Route: 048
     Dates: start: 20200325, end: 20200325
  16. METOPROLOL. [Suspect]
     Active Substance: METOPROLOL
     Dosage: 25?50 MG
     Dates: end: 20200328
  17. ASPIRIN [ACETYLSALICYLIC ACID] [Suspect]
     Active Substance: ASPIRIN
     Dosage: 100 MG
     Dates: end: 20200331
  18. HYDROCHLOROTHIAZIDE. [Concomitant]
     Active Substance: HYDROCHLOROTHIAZIDE
     Dosage: UNK
     Dates: start: 20200405, end: 20200412
  19. FUROSEMIDE. [Concomitant]
     Active Substance: FUROSEMIDE
     Dosage: UNK
     Dates: start: 20200402, end: 20200410
  20. N?ACETYLCYSTEINE [Concomitant]
     Active Substance: ACETYLCYSTEINE
     Dosage: UNK
     Dates: start: 20200407, end: 20200410
  21. ATORVASTATIN [Concomitant]
     Active Substance: ATORVASTATIN
     Dosage: 10 MG
  22. REYATAZ [Suspect]
     Active Substance: ATAZANAVIR SULFATE
     Dosage: 800 MG, DAILY
     Route: 048
     Dates: start: 20200330, end: 20200330
  23. ROCURONIUM [ROCURONIUM BROMIDE] [Suspect]
     Active Substance: ROCURONIUM BROMIDE
     Dosage: 30 G
     Dates: start: 20200327, end: 20200406
  24. FENTANYL. [Suspect]
     Active Substance: FENTANYL
     Dosage: UNK
     Dates: start: 20200326, end: 20200417
  25. METOPROLOL. [Suspect]
     Active Substance: METOPROLOL
     Dosage: 25?50 MG
     Dates: end: 20200329
  26. MEROPENEM. [Concomitant]
     Active Substance: MEROPENEM
     Dosage: UNK
     Dates: start: 20200405, end: 20200409
  27. ESOMEPRAZOLE. [Concomitant]
     Active Substance: ESOMEPRAZOLE MAGNESIUM
     Dosage: 40 MG, DAILY
     Dates: start: 20200401, end: 20200417
  28. SOTALOL. [Concomitant]
     Active Substance: SOTALOL
     Dosage: 80 MG
  29. TAMSULOSIN [Concomitant]
     Active Substance: TAMSULOSIN
     Dosage: 0.3 MG
  30. PLAQUENIL [Suspect]
     Active Substance: HYDROXYCHLOROQUINE SULFATE
     Dosage: 200 MG, DAILY
     Route: 048
     Dates: start: 20200326, end: 20200328
  31. ENOXAPARIN [Suspect]
     Active Substance: ENOXAPARIN
     Dosage: UNK
     Dates: start: 20200326
  32. CEFEPIME [Concomitant]
     Active Substance: CEFEPIME HYDROCHLORIDE
     Dosage: UNK
     Dates: start: 20200401, end: 20200405
  33. REYATAZ [Suspect]
     Active Substance: ATAZANAVIR SULFATE
     Dosage: 400 MG, DAILY
     Route: 048
     Dates: start: 20200331, end: 20200331
  34. METOPROLOL. [Suspect]
     Active Substance: METOPROLOL
     Dosage: 25?50 MG
     Dates: start: 20200405, end: 20200406

REACTIONS (2)
  - Hepatic enzyme increased [Recovering/Resolving]
  - Bundle branch block right [Unknown]

NARRATIVE: CASE EVENT DATE: 20200328
